FAERS Safety Report 17396915 (Version 3)
Quarter: 2020Q1

REPORT INFORMATION
  Report Type: Report from Study
  Country: SE (occurrence: SE)
  Receive Date: 20200210
  Receipt Date: 20200325
  Transmission Date: 20200409
  Serious: Yes (Death, Hospitalization)
  Sender: FDA-Public Use
  Company Number: SE-PFIZER INC-2020049381

PATIENT
  Age: 65 Year
  Sex: Female
  Weight: 57 kg

DRUGS (16)
  1. VITAMIN D [COLECALCIFEROL] [Concomitant]
     Active Substance: CHOLECALCIFEROL
     Indication: VITAMIN D DEFICIENCY
     Dosage: UNK
     Route: 048
     Dates: end: 20200209
  2. FUROSEMID [Concomitant]
     Active Substance: FUROSEMIDE
     Indication: DIURETIC THERAPY
     Dosage: UNK, AS NEEDED (UNK, PM)
     Route: 048
     Dates: end: 20200209
  3. OPSUMIT [Suspect]
     Active Substance: MACITENTAN
     Indication: PULMONARY ARTERIAL HYPERTENSION
     Dosage: 10 MG, 1X/DAY
     Route: 048
     Dates: start: 20181101, end: 20200209
  4. BISOPROLOL [Concomitant]
     Active Substance: BISOPROLOL
     Indication: ARRHYTHMIA
     Dosage: UNK
     Route: 048
     Dates: end: 20200209
  5. SPIRONOLACTONE. [Suspect]
     Active Substance: SPIRONOLACTONE
     Dosage: UNK
     Route: 048
  6. UPTRAVI [Suspect]
     Active Substance: SELEXIPAG
     Indication: PULMONARY ARTERIAL HYPERTENSION
     Dosage: 200 UG, 1X/DAY
     Route: 048
     Dates: start: 20190924, end: 20190929
  7. APIXABAN [Concomitant]
     Active Substance: APIXABAN
     Indication: ANTICOAGULANT THERAPY
     Dosage: UNK
     Route: 048
     Dates: end: 20200209
  8. FOLIC ACID. [Concomitant]
     Active Substance: FOLIC ACID
     Indication: HYPOVITAMINOSIS
     Dosage: UNK
     Route: 048
     Dates: end: 20200209
  9. UPTRAVI [Suspect]
     Active Substance: SELEXIPAG
     Dosage: 400 UG, 1X/DAY
     Route: 048
     Dates: start: 20190916, end: 20190923
  10. SACUBITRIL/VALSARTAN [Suspect]
     Active Substance: SACUBITRIL\VALSARTAN
     Indication: CARDIAC FAILURE
     Dosage: UNK
     Route: 048
     Dates: start: 2019, end: 20200209
  11. UPTRAVI [Suspect]
     Active Substance: SELEXIPAG
     Dosage: 400 UG, 1X/DAY
     Route: 048
     Dates: start: 20190826, end: 20190909
  12. UPTRAVI [Suspect]
     Active Substance: SELEXIPAG
     Dosage: 800 MG, 1X/DAY
     Route: 048
     Dates: start: 20190909, end: 20190916
  13. LEVAXIN [Concomitant]
     Active Substance: LEVOTHYROXINE SODIUM
     Indication: HYPOTHYROIDISM
     Dosage: UNK
     Route: 048
     Dates: end: 20200209
  14. OMEPRAZOL [Concomitant]
     Active Substance: OMEPRAZOLE
     Indication: GASTRITIS
     Dosage: UNK, AS NEEDED (UNK, PM)
     Route: 048
     Dates: end: 20200209
  15. CYANOCOBALAMIN. [Concomitant]
     Active Substance: CYANOCOBALAMIN
     Indication: VITAMIN B COMPLEX DEFICIENCY
     Dosage: UNK, PM
     Route: 048
     Dates: end: 20200209
  16. ADCIRCA [Concomitant]
     Active Substance: TADALAFIL
     Indication: PULMONARY ARTERIAL HYPERTENSION
     Dosage: 40 MG, 1X/DAY
     Route: 048
     Dates: start: 20181101, end: 20200209

REACTIONS (11)
  - Prohormone brain natriuretic peptide increased [Fatal]
  - Blood creatinine increased [Fatal]
  - Dyspnoea [Recovered/Resolved]
  - Atrial fibrillation [Fatal]
  - Arrhythmia [Fatal]
  - Glomerular filtration rate decreased [Fatal]
  - Creatinine renal clearance decreased [Fatal]
  - Pleural effusion [Fatal]
  - Renal impairment [Fatal]
  - Left ventricular failure [Fatal]
  - Atrial flutter [Fatal]

NARRATIVE: CASE EVENT DATE: 20190115
